FAERS Safety Report 23222140 (Version 2)
Quarter: 2024Q1

REPORT INFORMATION
  Report Type: Spontaneous
  Country: US (occurrence: US)
  Receive Date: 20231123
  Receipt Date: 20240129
  Transmission Date: 20240410
  Serious: No
  Sender: FDA-Public Use
  Company Number: US-BRISTOL-MYERS SQUIBB COMPANY-2023-167798

PATIENT
  Age: 78 Year
  Sex: Male
  Weight: 67.13 kg

DRUGS (2)
  1. REVLIMID [Suspect]
     Active Substance: LENALIDOMIDE
     Indication: Plasma cell myeloma
     Dosage: 3W, 1W OFF
     Route: 048
  2. REVLIMID [Suspect]
     Active Substance: LENALIDOMIDE
     Indication: Plasmacytoma
     Route: 048

REACTIONS (12)
  - Pyrexia [Recovering/Resolving]
  - Rash macular [Unknown]
  - Hyperhidrosis [Unknown]
  - Nausea [Unknown]
  - Vomiting [Unknown]
  - Abdominal pain upper [Recovering/Resolving]
  - Flatulence [Recovering/Resolving]
  - Abdominal pain lower [Recovering/Resolving]
  - Constipation [Recovering/Resolving]
  - Muscle tightness [Recovering/Resolving]
  - Rash [Recovering/Resolving]
  - Micturition disorder [Recovering/Resolving]
